FAERS Safety Report 5534456-8 (Version None)
Quarter: 2007Q4

REPORT INFORMATION
  Report Type: 
  Country: None (occurrence: None)
  Receive Date: 20071205
  Receipt Date: 20071128
  Transmission Date: 20080405
  Serious: Yes (Life-Threatening, Hospitalization)
  Sender: FDA-Public Use
  Company Number: B0498077A

PATIENT
  Age: 64 Year
  Sex: Female

DRUGS (8)
  1. FORTUM [Suspect]
     Route: 042
     Dates: start: 20070911
  2. VOLTAREN [Suspect]
     Indication: PAIN
     Dosage: 1UNIT PER DAY
     Route: 048
  3. AMIKACIN [Suspect]
     Route: 042
     Dates: start: 20070911
  4. XANAX [Concomitant]
     Route: 065
  5. FLAGYL [Concomitant]
     Route: 065
     Dates: start: 20070911
  6. ROCEPHIN [Concomitant]
     Route: 065
     Dates: start: 20070911
  7. REHYDRATION [Concomitant]
     Route: 050
  8. DIURETIC [Concomitant]
     Indication: OLIGURIA
     Route: 042

REACTIONS (4)
  - DEHYDRATION [None]
  - OLIGURIA [None]
  - RENAL FAILURE [None]
  - RENAL TUBULAR NECROSIS [None]
